FAERS Safety Report 14572545 (Version 1)
Quarter: 2018Q1

REPORT INFORMATION
  Report Type: Spontaneous
  Country: GB (occurrence: GB)
  Receive Date: 20180226
  Receipt Date: 20180226
  Transmission Date: 20180509
  Serious: Yes (Other)
  Sender: FDA-Public Use
  Company Number: GB-SA-2018SA043864

PATIENT
  Age: 27 Year
  Sex: Female

DRUGS (4)
  1. FOLIC ACID. [Concomitant]
     Active Substance: FOLIC ACID
     Dates: start: 2007, end: 2008
  2. CEREZYME [Suspect]
     Active Substance: IMIGLUCERASE
     Indication: GAUCHER^S DISEASE TYPE I
     Route: 041
     Dates: start: 19920917, end: 20080601
  3. IRON [Concomitant]
     Active Substance: IRON
     Route: 065
     Dates: start: 2007, end: 2008
  4. PENICILLIN VK [Concomitant]
     Active Substance: PENICILLIN V POTASSIUM
     Indication: PROPHYLAXIS
     Dates: start: 1995

REACTIONS (4)
  - Spleen disorder [Unknown]
  - Carpal tunnel syndrome [Recovered/Resolved]
  - Exposure during pregnancy [Unknown]
  - Foetal distress syndrome [Recovered/Resolved]

NARRATIVE: CASE EVENT DATE: 200804
